FAERS Safety Report 4269608-0 (Version None)
Quarter: 2004Q1

REPORT INFORMATION
  Report Type: 
  Country: None (occurrence: None)
  Receive Date: 20040112
  Receipt Date: 20031223
  Transmission Date: 20041129
  Serious: Yes (Death, Hospitalization)
  Sender: FDA-Public Use
  Company Number: US047827

PATIENT
  Age: 17 Year
  Sex: Female

DRUGS (7)
  1. ENBREL [Suspect]
     Dosage: 12.5 MG, TWICE WEEKLY, SC
     Route: 058
     Dates: start: 20000801, end: 20030801
  2. SALBUTAMOL [Concomitant]
  3. CARBAMAZEPINE [Concomitant]
  4. ACETAMINOPHEN W/ CODEINE [Concomitant]
  5. OMEPRAZOLE [Concomitant]
  6. VALPROATE SODIUM [Concomitant]
  7. AMILORIDE [Concomitant]

REACTIONS (2)
  - LEFT VENTRICULAR FAILURE [None]
  - PULMONARY OEDEMA [None]
